FAERS Safety Report 23843599 (Version 1)
Quarter: 2024Q2

REPORT INFORMATION
  Report Type: Report from Study
  Country: HU (occurrence: HU)
  Receive Date: 20240510
  Receipt Date: 20240510
  Transmission Date: 20240716
  Serious: Yes (Death, Hospitalization)
  Sender: FDA-Public Use
  Company Number: HU-ABBVIE-5754391

PATIENT
  Age: 49 Year
  Sex: Female

DRUGS (12)
  1. CARBIDOPA\LEVODOPA [Suspect]
     Active Substance: CARBIDOPA\LEVODOPA
     Indication: Parkinson^s disease
     Dosage: MORNING DOSE: 9.0 ML; CONTINUOUS DOSE: 3.7 ML/HOUR; EXTRA DOSE: 1.2 ML
     Route: 050
     Dates: start: 20240104
  2. CARBIDOPA\LEVODOPA [Suspect]
     Active Substance: CARBIDOPA\LEVODOPA
  3. LEVIL [Concomitant]
     Indication: Epilepsy
     Dosage: 1000 MILLIGRAM?FORM STRENGTH: 500 MILLIGRAM
     Route: 048
  4. TRAZODONE HYDROCHLORIDE [Concomitant]
     Active Substance: TRAZODONE HYDROCHLORIDE
     Indication: Depression
     Dosage: 50 MILLIGRAM?FORM STRENGTH: 150 MILLIGRAM?FREQUENCY TEXT: 1/3 TABLET IN THE EVENING
     Route: 048
  5. TRAZODONE HYDROCHLORIDE [Concomitant]
     Active Substance: TRAZODONE HYDROCHLORIDE
     Indication: Depression
     Dosage: 50 MILLIGRAM?FORM STRENGTH: 150 MILLIGRAM?FREQUENCY TEXT: 1/3 TABLET IN THE EVENING
     Route: 048
  6. Astonin [Concomitant]
     Indication: Orthostatic hypotension
     Dosage: 0.1 MILLIGRAM?FORM STRENGTH: 0.1 MILLIGRAM
     Route: 048
  7. Astonin [Concomitant]
     Indication: Orthostatic hypotension
     Dosage: 0.1 MILLIGRAM?FORM STRENGTH: 0.1 MILLIGRAM
     Route: 048
  8. SCIPPA [Concomitant]
     Indication: Depression
     Dosage: 10 MILLIGRAM?FORM STRENGTH: 10 MILLIGRAM
     Route: 048
  9. FAMOTIDINE [Concomitant]
     Active Substance: FAMOTIDINE
     Indication: Product used for unknown indication
     Dosage: 40 MILLIGRAM?FORM STRENGTH: 40 MILLIGRAM?FREQUENCY TEXT: 1 TABLET IN THE EVENING
     Route: 048
  10. RIVOTRIL [Concomitant]
     Active Substance: CLONAZEPAM
     Indication: Anxiety
     Dosage: TIME INTERVAL: 0.33333333 DAYS: 1.5 MILLIGRAM?FORM STRENGTH: 0.5 MILLIGRAM
     Route: 048
  11. QUETIAPINE FUMARATE [Concomitant]
     Active Substance: QUETIAPINE FUMARATE
     Indication: Depression
     Dosage: TIME INTERVAL: 0.33333333 DAYS: 100 MILLIGRAM?FORM STRENGTH: 25 MILLIGRAM
     Route: 048
  12. LAMOTRIGINE [Concomitant]
     Active Substance: LAMOTRIGINE
     Indication: Epilepsy
     Dosage: 2.5 MILLIGRAM?FORM STRENGTH: 2.5 MILLIGRAM
     Route: 048

REACTIONS (3)
  - Cardiovascular insufficiency [Fatal]
  - Pyrexia [Unknown]
  - Oxygen saturation decreased [Unknown]

NARRATIVE: CASE EVENT DATE: 20240504
